FAERS Safety Report 6278783-8 (Version None)
Quarter: 2009Q3

REPORT INFORMATION
  Report Type: 
  Country: None (occurrence: None)
  Receive Date: 20090723
  Receipt Date: 20070829
  Transmission Date: 20100115
  Serious: Yes (Hospitalization, Other)
  Sender: FDA-Public Use
  Company Number: US-ASTRAZENECA-2006UW03025

PATIENT
  Age: 7208 Day
  Sex: Female
  Weight: 124.7 kg

DRUGS (35)
  1. SEROQUEL [Suspect]
     Indication: ANXIETY
     Dosage: 100 MG TO 600 MG
     Route: 048
     Dates: start: 20030101, end: 20060101
  2. SEROQUEL [Suspect]
     Indication: DEPRESSION
     Dosage: 100 MG TO 600 MG
     Route: 048
     Dates: start: 20030101, end: 20060101
  3. SEROQUEL [Suspect]
     Indication: BIPOLAR DISORDER
     Dosage: 100 MG TO 600 MG
     Route: 048
     Dates: start: 20030101, end: 20060101
  4. SEROQUEL [Suspect]
     Route: 048
     Dates: start: 20030122
  5. SEROQUEL [Suspect]
     Route: 048
     Dates: start: 20030122
  6. SEROQUEL [Suspect]
     Route: 048
     Dates: start: 20030122
  7. SEROQUEL [Suspect]
     Dosage: 300 MG - 400 MG
     Route: 048
     Dates: start: 20050810
  8. SEROQUEL [Suspect]
     Dosage: 300 MG - 400 MG
     Route: 048
     Dates: start: 20050810
  9. SEROQUEL [Suspect]
     Dosage: 300 MG - 400 MG
     Route: 048
     Dates: start: 20050810
  10. SEROQUEL [Suspect]
     Route: 048
     Dates: start: 20060119
  11. SEROQUEL [Suspect]
     Route: 048
     Dates: start: 20060119
  12. SEROQUEL [Suspect]
     Route: 048
     Dates: start: 20060119
  13. EFFEXOR [Concomitant]
  14. TOPAMAX [Concomitant]
     Dosage: 25 MG - 100 MG
     Dates: start: 20030122
  15. TRILEPTAL [Concomitant]
     Dosage: 300 MG - 600 MG
     Dates: start: 20030206
  16. EPIDRIN [Concomitant]
  17. LEXAPRO [Concomitant]
     Dates: start: 20030416
  18. AUGMENTIN [Concomitant]
  19. MINOCYCLINE HCL [Concomitant]
     Dates: start: 20090509
  20. BENZACLIN [Concomitant]
  21. WELLBUTRIN [Concomitant]
     Dates: start: 20040112
  22. CLARINEX [Concomitant]
  23. PROPRANOLOL [Concomitant]
  24. LORATADINE [Concomitant]
  25. VALIUM [Concomitant]
  26. ABILIFY [Concomitant]
     Dates: start: 20050921
  27. CLONAZEPAM [Concomitant]
     Dosage: 0.5 MG - 1 MG
     Dates: start: 20050519
  28. DIAZEPAM [Concomitant]
     Dosage: 5 MG - 10 MG
     Dates: start: 20060123
  29. DILANTIN [Concomitant]
     Dates: start: 20050706
  30. DIVALPROEX SODIUM [Concomitant]
     Dates: start: 20060508
  31. ELETRIPTAN [Concomitant]
     Dates: start: 20061219
  32. HYDROXYZINE [Concomitant]
     Dosage: 25 MG TABLET TAKE 1 OR 2 TABLET EVERY 4 TO 6 HOURS IF NEEDED
     Dates: start: 20060420
  33. PROPRANOLOL HYDROCHLORIDE [Concomitant]
     Dates: start: 20040119
  34. TRAZODONE [Concomitant]
     Dates: start: 20050925
  35. ZIPRASIDONE HCL [Concomitant]
     Route: 048
     Dates: start: 20070821

REACTIONS (10)
  - BLOOD PRESSURE INCREASED [None]
  - CONVULSION [None]
  - DIABETES MELLITUS [None]
  - EUSTACHIAN TUBE DYSFUNCTION [None]
  - HEART RATE INCREASED [None]
  - HOMICIDAL IDEATION [None]
  - HYPERTENSION [None]
  - PRURITUS [None]
  - SUICIDAL IDEATION [None]
  - WEIGHT INCREASED [None]
